FAERS Safety Report 19365777 (Version 2)
Quarter: 2022Q1

REPORT INFORMATION
  Report Type: Spontaneous
  Country: US (occurrence: None)
  Receive Date: 20210602
  Receipt Date: 20220209
  Transmission Date: 20220423
  Serious: Yes (Hospitalization, Other)
  Sender: FDA-Public Use
  Company Number: 2018SF65184

PATIENT
  Age: 10343 Day
  Sex: Male

DRUGS (34)
  1. PRILOSEC [Suspect]
     Active Substance: OMEPRAZOLE MAGNESIUM
     Indication: Ulcer
     Route: 048
  2. PRILOSEC [Suspect]
     Active Substance: OMEPRAZOLE MAGNESIUM
     Indication: Gastrooesophageal reflux disease
     Route: 048
  3. PRILOSEC [Suspect]
     Active Substance: OMEPRAZOLE MAGNESIUM
     Indication: Ulcer
     Dosage: GENERIC
     Route: 065
     Dates: start: 2010
  4. PRILOSEC [Suspect]
     Active Substance: OMEPRAZOLE MAGNESIUM
     Indication: Gastrooesophageal reflux disease
     Dosage: GENERIC
     Route: 065
     Dates: start: 2010
  5. PREVACID [Suspect]
     Active Substance: LANSOPRAZOLE
     Indication: Ulcer
     Route: 065
     Dates: start: 2001, end: 2010
  6. PREVACID [Suspect]
     Active Substance: LANSOPRAZOLE
     Indication: Gastrooesophageal reflux disease
     Route: 065
     Dates: start: 2001, end: 2010
  7. TYLENOL [Concomitant]
     Active Substance: ACETAMINOPHEN
     Indication: Headache
  8. TYLENOL [Concomitant]
     Active Substance: ACETAMINOPHEN
     Indication: Pain
  9. MULTI-VITAMINS [Concomitant]
     Indication: Asthenia
  10. MULTI-VITAMINS [Concomitant]
     Indication: Supplementation therapy
  11. RANITIDINE [Concomitant]
     Active Substance: RANITIDINE
  12. PEPTO-BISMOL [Concomitant]
     Active Substance: BISMUTH SUBSALICYLATE
  13. TUMS [Concomitant]
     Active Substance: CALCIUM CARBONATE
  14. MILK OF MAGNESIA [Concomitant]
     Active Substance: MAGNESIUM HYDROXIDE
  15. LANTUS SOLOSTAR [Concomitant]
     Active Substance: INSULIN GLARGINE
     Indication: Diabetes mellitus
     Route: 065
     Dates: start: 2014
  16. FUROSEMIDE [Concomitant]
     Active Substance: FUROSEMIDE
     Indication: Diuretic therapy
     Route: 065
     Dates: start: 2016
  17. VENTOLIN [Concomitant]
     Active Substance: ALBUTEROL SULFATE
     Indication: Diuretic therapy
     Route: 065
     Dates: start: 2016
  18. NOVOLOG [Concomitant]
     Active Substance: INSULIN ASPART
     Indication: Diabetes mellitus
  19. AMOXICILLIN [Concomitant]
     Active Substance: AMOXICILLIN
     Indication: Antibiotic therapy
  20. METOPROLOL [Concomitant]
     Active Substance: METOPROLOL
     Indication: Angina pectoris
  21. METOPROLOL [Concomitant]
     Active Substance: METOPROLOL
     Indication: Chest pain
  22. METOPROLOL [Concomitant]
     Active Substance: METOPROLOL
     Indication: Cardiac failure
  23. LORATADINE [Concomitant]
     Active Substance: LORATADINE
     Route: 065
     Dates: start: 2015, end: 2016
  24. BENZONATATE [Concomitant]
     Active Substance: BENZONATATE
     Indication: Antibiotic therapy
  25. CYCLOBENZAPRINE [Concomitant]
     Active Substance: CYCLOBENZAPRINE
     Indication: Pain
     Route: 065
     Dates: start: 2014
  26. FLONASE [Concomitant]
     Active Substance: FLUTICASONE PROPIONATE
     Indication: Antibiotic therapy
     Route: 065
     Dates: start: 2015
  27. PENICILLIN [Concomitant]
     Active Substance: PENICILLIN
     Indication: Antibiotic therapy
     Route: 065
     Dates: start: 2015
  28. PROAIR HFA [Concomitant]
     Active Substance: ALBUTEROL SULFATE
     Indication: Antibiotic therapy
     Route: 065
     Dates: start: 2014, end: 2015
  29. FLUTICASONE [Concomitant]
     Active Substance: FLUTICASONE
     Indication: Antibiotic therapy
     Route: 065
     Dates: start: 2014, end: 2015
  30. LISINOPRIL [Concomitant]
     Active Substance: LISINOPRIL
     Indication: Cardiac failure
     Route: 065
     Dates: start: 2014
  31. ATORVASTATIN [Concomitant]
     Active Substance: ATORVASTATIN
     Indication: Antibiotic therapy
     Route: 065
     Dates: start: 2014
  32. BENZONATATE [Concomitant]
     Active Substance: BENZONATATE
     Indication: Cough
     Route: 065
     Dates: start: 2014
  33. LORATADINE [Concomitant]
     Active Substance: LORATADINE
     Indication: Antibiotic therapy
     Route: 065
     Dates: start: 2014
  34. TYLENOL [Concomitant]
     Active Substance: ACETAMINOPHEN
     Route: 065
     Dates: start: 2014

REACTIONS (7)
  - Chronic kidney disease [Not Recovered/Not Resolved]
  - Renal failure [Not Recovered/Not Resolved]
  - Renal injury [Unknown]
  - Acute kidney injury [Unknown]
  - End stage renal disease [Unknown]
  - Post-traumatic stress disorder [Not Recovered/Not Resolved]
  - Depression [Not Recovered/Not Resolved]

NARRATIVE: CASE EVENT DATE: 20160926
